FAERS Safety Report 8330896-2 (Version None)
Quarter: 2012Q2

REPORT INFORMATION
  Report Type: 
  Country: None (occurrence: None)
  Receive Date: 20120502
  Receipt Date: 20120402
  Transmission Date: 20120825
  Serious: No
  Sender: FDA-Public Use
  Company Number: US-AMGEN-USASP2011020344

PATIENT
  Age: 56 Year
  Sex: Male
  Weight: 124.72 kg

DRUGS (12)
  1. HYDROCODONE [Concomitant]
     Dosage: UNK UNK, PRN
  2. DIAZEPAM [Concomitant]
     Dosage: 5 MG, PRN
  3. ENBREL [Suspect]
     Dosage: 50 MG, QWK
     Route: 058
     Dates: start: 20120105
  4. ATENOLOL [Concomitant]
  5. CYCLOBENZAPRINE [Concomitant]
     Dosage: UNK UNK, PRN
  6. TESTOSTERONE [Concomitant]
     Dosage: 5 MG, QD
  7. VITAMIN D [Concomitant]
     Dosage: UNK UNK, QD
  8. AMITRIPTYLINE HCL [Concomitant]
     Dosage: 25 MG, QHS
  9. SIMVASTATIN [Concomitant]
     Dosage: UNK UNK, QHS
  10. ENBREL [Suspect]
     Indication: ANKYLOSING SPONDYLITIS
     Dosage: 50 MG, QWK
     Dates: start: 20110201
  11. CELEBREX [Concomitant]
     Dosage: UNK UNK, QD
  12. CIPRO [Concomitant]
     Dosage: UNK UNK, PRN

REACTIONS (2)
  - THERAPEUTIC RESPONSE DECREASED [None]
  - ANKYLOSING SPONDYLITIS [None]
